FAERS Safety Report 14223711 (Version 1)
Quarter: 2017Q4

REPORT INFORMATION
  Report Type: Spontaneous
  Country: IT (occurrence: IT)
  Receive Date: 20171125
  Receipt Date: 20171125
  Transmission Date: 20180321
  Serious: Yes (Other)
  Sender: FDA-Public Use
  Company Number: IT-ACCORD-061324

PATIENT
  Age: 45 Year
  Sex: Male

DRUGS (1)
  1. QUETIAPINE FUMARATE ACCORD [Suspect]
     Active Substance: QUETIAPINE FUMARATE
     Indication: MAJOR DEPRESSION
     Dosage: STRENGTH: 300 MG
     Route: 048

REACTIONS (2)
  - Arthralgia [None]
  - Gait inability [None]

NARRATIVE: CASE EVENT DATE: 20170630
